FAERS Safety Report 4413166-4 (Version None)
Quarter: 2004Q3

REPORT INFORMATION
  Report Type: 
  Country: None (occurrence: None)
  Receive Date: 20040802
  Receipt Date: 20040603
  Transmission Date: 20050211
  Serious: Yes (Life-Threatening)
  Sender: FDA-Public Use
  Company Number: FR-GLAXOSMITHKLINE-B0334598A

PATIENT
  Age: 36 Year
  Sex: Female
  Weight: 78 kg

DRUGS (1)
  1. AMOXICILLIN [Suspect]
     Indication: INFECTION PROPHYLAXIS
     Route: 050
     Dates: start: 20040401, end: 20040401

REACTIONS (8)
  - DRUG EXPOSURE DURING PREGNANCY [None]
  - ERYTHEMA [None]
  - FACE OEDEMA [None]
  - HYPERSENSITIVITY [None]
  - HYPOTENSION [None]
  - LARYNGEAL OEDEMA [None]
  - MALAISE [None]
  - PREMATURE RUPTURE OF MEMBRANES [None]
